FAERS Safety Report 7394912-7 (Version None)
Quarter: 2011Q2

REPORT INFORMATION
  Report Type: 
  Country: None (occurrence: None)
  Receive Date: 20110405
  Receipt Date: 20110328
  Transmission Date: 20111010
  Serious: Yes (Hospitalization)
  Sender: FDA-Public Use
  Company Number: B0709734A

PATIENT
  Sex: Male
  Weight: 59 kg

DRUGS (20)
  1. CYMERIN [Concomitant]
     Indication: STEM CELL TRANSPLANT
     Dosage: 420MG PER DAY
     Route: 042
     Dates: start: 20090218, end: 20090219
  2. ALOSITOL [Concomitant]
     Dosage: 200MG PER DAY
     Route: 048
     Dates: start: 20090218, end: 20090218
  3. SOLDEM 3A [Concomitant]
     Route: 042
  4. FUROSEMIDE [Concomitant]
     Route: 048
     Dates: start: 20090218
  5. SOLULACT [Concomitant]
     Route: 042
  6. MEYLON [Concomitant]
     Route: 042
  7. HEPARIN SODIUM [Concomitant]
     Route: 042
  8. CYLOCIDE [Concomitant]
     Indication: STEM CELL TRANSPLANT
     Dosage: 660MG PER DAY
     Route: 042
     Dates: start: 20090219, end: 20090222
  9. VEPESID [Concomitant]
     Indication: STEM CELL TRANSPLANT
     Dosage: 320MG PER DAY
     Route: 042
     Dates: start: 20090219, end: 20090222
  10. GASTER D [Concomitant]
     Route: 048
     Dates: start: 20090218
  11. POSTERISAN [Concomitant]
     Dosage: 2IUAX PER DAY
     Route: 061
     Dates: start: 20090217
  12. POLYMYXIN-B-SULFATE [Concomitant]
     Dosage: 3IU6 PER DAY
     Route: 048
     Dates: start: 20090218
  13. KYTRIL [Concomitant]
     Route: 042
  14. SEISHOKU [Concomitant]
     Route: 042
  15. DECADRON [Concomitant]
     Route: 042
  16. ALKERAN [Suspect]
     Indication: STEM CELL TRANSPLANT
     Dosage: 230MG PER DAY
     Route: 042
     Dates: start: 20090223, end: 20090223
  17. BACTRIM [Concomitant]
     Route: 048
     Dates: start: 20090218
  18. FUROSEMIDE [Concomitant]
     Route: 042
  19. MAGLAX [Concomitant]
     Dosage: 990MG PER DAY
     Route: 048
     Dates: start: 20090218
  20. SEISHOKU [Concomitant]
     Route: 042

REACTIONS (3)
  - RENAL IMPAIRMENT [None]
  - PNEUMONIA [None]
  - INTERSTITIAL LUNG DISEASE [None]
